FAERS Safety Report 9441862 (Version 1)
Quarter: 2013Q3

REPORT INFORMATION
  Report Type: Spontaneous
  Country: ES (occurrence: ES)
  Receive Date: 20130806
  Receipt Date: 20130806
  Transmission Date: 20140515
  Serious: Yes (Hospitalization)
  Sender: FDA-Public Use
  Company Number: ES-JNJFOC-20130718844

PATIENT
  Age: 80 Year
  Sex: Male

DRUGS (8)
  1. REOPRO [Suspect]
     Indication: ACUTE MYOCARDIAL INFARCTION
     Route: 042
     Dates: start: 20121228, end: 20121228
  2. EFFIENT [Interacting]
     Indication: ACUTE MYOCARDIAL INFARCTION
     Route: 048
     Dates: start: 20121228
  3. ARIXTRA [Interacting]
     Indication: ACUTE MYOCARDIAL INFARCTION
     Route: 058
     Dates: start: 20121228, end: 20130101
  4. ANGIOX [Interacting]
     Indication: ACUTE MYOCARDIAL INFARCTION
     Route: 042
     Dates: start: 20121228, end: 20121228
  5. ADIRO [Interacting]
     Indication: ACUTE MYOCARDIAL INFARCTION
     Route: 048
     Dates: start: 1993
  6. NOREPINEPHRINE HYDROCHLORIDE [Concomitant]
     Indication: HYPOTENSION
     Route: 041
     Dates: start: 20121228, end: 20121229
  7. LIDOCAINE [Concomitant]
     Indication: ARRHYTHMIA
     Route: 041
     Dates: start: 20121228, end: 20121229
  8. PROPOFOL [Concomitant]
     Indication: SEDATION
     Route: 041
     Dates: start: 20121228, end: 20121229

REACTIONS (5)
  - Upper gastrointestinal haemorrhage [Recovered/Resolved]
  - Haematuria [Recovered/Resolved]
  - Coagulopathy [Recovered/Resolved]
  - Drug interaction [Recovered/Resolved]
  - Anaemia [Unknown]
